FAERS Safety Report 9073012 (Version 1)
Quarter: 2013Q1

REPORT INFORMATION
  Report Type: Spontaneous
  Country: TN (occurrence: TN)
  Receive Date: 20130128
  Receipt Date: 20130128
  Transmission Date: 20140127
  Serious: Yes (Hospitalization)
  Sender: FDA-Public Use
  Company Number: TN-ABBOTT-13P-160-1038394-00

PATIENT
  Age: 22 Year
  Sex: Male

DRUGS (3)
  1. HUMIRA [Suspect]
     Indication: CROHN^S DISEASE
     Dosage: FIRST DOSE
     Route: 058
  2. HUMIRA [Suspect]
     Dosage: SECOND DOSE
     Route: 058
  3. HUMIRA [Suspect]
     Route: 058

REACTIONS (2)
  - Disseminated tuberculosis [Unknown]
  - Unevaluable event [Unknown]
